FAERS Safety Report 12243064 (Version 1)
Quarter: 2016Q2

REPORT INFORMATION
  Report Type: Spontaneous
  Country: US (occurrence: US)
  Receive Date: 20160406
  Receipt Date: 20160406
  Transmission Date: 20160815
  Serious: No
  Sender: FDA-Public Use
  Company Number: US-SA-2015SA064884

PATIENT
  Age: 63 Year
  Sex: Male

DRUGS (1)
  1. ALLEGRA-D [Suspect]
     Active Substance: FEXOFENADINE\PSEUDOEPHEDRINE
     Indication: MULTIPLE ALLERGIES
     Dosage: DOSAGE: 180MG/240MG
     Route: 048
     Dates: start: 201503

REACTIONS (2)
  - Insomnia [Unknown]
  - Nasal congestion [Unknown]
